FAERS Safety Report 9548453 (Version 1)
Quarter: 2013Q3

REPORT INFORMATION
  Report Type: Spontaneous
  Country: US (occurrence: US)
  Receive Date: 20130924
  Receipt Date: 20130924
  Transmission Date: 20140515
  Serious: No
  Sender: FDA-Public Use
  Company Number: US-PFIZER INC-2013269902

PATIENT
  Age: 50 Year
  Sex: Female

DRUGS (10)
  1. LISINOPRIL [Suspect]
     Dosage: UNK
  2. TAPAZOLE [Suspect]
     Dosage: UNK
  3. CALAN [Suspect]
     Dosage: UNK
  4. GLUCOTROL [Suspect]
     Dosage: UNK
  5. LYRICA [Suspect]
     Dosage: 150 MG, 2X/DAY
     Route: 048
  6. EES [Suspect]
     Dosage: UNK
  7. GLUCOPHAGE [Suspect]
     Dosage: UNK
  8. NOVOLOG [Suspect]
     Dosage: UNK
  9. INSULIN DETEMIR [Suspect]
     Dosage: UNK
  10. MELATONIN [Suspect]
     Dosage: UNK

REACTIONS (1)
  - Drug hypersensitivity [Unknown]
